FAERS Safety Report 23076815 (Version 1)
Quarter: 2023Q4

REPORT INFORMATION
  Report Type: Spontaneous
  Country: US (occurrence: US)
  Receive Date: 20231017
  Receipt Date: 20231017
  Transmission Date: 20240110
  Serious: Yes (Life-Threatening, Other)
  Sender: FDA-Public Use
  Company Number: US-BAXTER-2023BAX033115

PATIENT
  Age: 75 Year
  Sex: Male

DRUGS (1)
  1. NEXTERONE [Suspect]
     Active Substance: AMIODARONE HYDROCHLORIDE
     Indication: Atrial flutter
     Dosage: 200 MG TWICE DAILY
     Route: 065

REACTIONS (8)
  - Eosinophilic pneumonia [Unknown]
  - Pulmonary toxicity [Unknown]
  - Dyspnoea [Recovering/Resolving]
  - Pleural effusion [Unknown]
  - Lung infiltration [Unknown]
  - Respiratory failure [Recovering/Resolving]
  - Hypoxia [Unknown]
  - Pneumonitis [Unknown]
